FAERS Safety Report 16266276 (Version 7)
Quarter: 2019Q4

REPORT INFORMATION
  Report Type: Report from Study
  Country: US (occurrence: US)
  Receive Date: 20190502
  Receipt Date: 20191007
  Transmission Date: 20200122
  Serious: Yes (Hospitalization)
  Sender: FDA-Public Use
  Company Number: US-EISAI MEDICAL RESEARCH-EC-2019-054044

PATIENT
  Age: 72 Year
  Sex: Male
  Weight: 80.5 kg

DRUGS (14)
  1. LENVIMA [Suspect]
     Active Substance: LENVATINIB
     Indication: HEPATOCELLULAR CARCINOMA
     Route: 048
     Dates: start: 201904, end: 20190603
  2. ALPRAZOLAM. [Concomitant]
     Active Substance: ALPRAZOLAM
  3. AEROSPAN [Concomitant]
     Active Substance: FLUNISOLIDE
  4. DONEPEZIL. [Concomitant]
     Active Substance: DONEPEZIL
     Route: 048
  5. LENVIMA [Suspect]
     Active Substance: LENVATINIB
     Route: 048
     Dates: start: 20190727, end: 20190912
  6. LENVIMA [Suspect]
     Active Substance: LENVATINIB
     Indication: HEPATIC CANCER
     Route: 048
     Dates: start: 20190304, end: 201904
  7. SYMBICORT [Concomitant]
     Active Substance: BUDESONIDE\FORMOTEROL FUMARATE DIHYDRATE
  8. LENVIMA [Suspect]
     Active Substance: LENVATINIB
     Route: 048
     Dates: start: 2019, end: 20190726
  9. ASA [Concomitant]
     Active Substance: ASPIRIN
  10. ELIQUIS [Concomitant]
     Active Substance: APIXABAN
  11. HUMALOG [Concomitant]
     Active Substance: INSULIN LISPRO
  12. PRAVASTATIN. [Concomitant]
     Active Substance: PRAVASTATIN
  13. ENTECAVIR. [Concomitant]
     Active Substance: ENTECAVIR
  14. LANTUS [Concomitant]
     Active Substance: INSULIN GLARGINE

REACTIONS (25)
  - Diarrhoea [Recovering/Resolving]
  - Urinary tract infection [Unknown]
  - Musculoskeletal pain [Unknown]
  - Pain in extremity [Unknown]
  - Fall [Recovering/Resolving]
  - Lethargy [Not Recovered/Not Resolved]
  - Hypotension [Not Recovered/Not Resolved]
  - Fatigue [Not Recovered/Not Resolved]
  - Gait inability [Not Recovered/Not Resolved]
  - Dysphonia [Not Recovered/Not Resolved]
  - Stubbornness [Not Recovered/Not Resolved]
  - Bowel movement irregularity [Unknown]
  - Decreased appetite [Recovering/Resolving]
  - Confusional state [Recovering/Resolving]
  - Asthenia [Recovering/Resolving]
  - Chest pain [Unknown]
  - Sluggishness [Not Recovered/Not Resolved]
  - Dehydration [Recovering/Resolving]
  - Nausea [Recovering/Resolving]
  - Vomiting [Recovering/Resolving]
  - Headache [Not Recovered/Not Resolved]
  - Blood pressure systolic increased [Not Recovered/Not Resolved]
  - Insomnia [Not Recovered/Not Resolved]
  - Back pain [Unknown]
  - Decubitus ulcer [Unknown]

NARRATIVE: CASE EVENT DATE: 2019
